FAERS Safety Report 5018482-3 (Version None)
Quarter: 2006Q2

REPORT INFORMATION
  Report Type: 
  Country: None (occurrence: None)
  Receive Date: 20060605
  Receipt Date: 20060118
  Transmission Date: 20061013
  Serious: Yes (Disabling)
  Sender: FDA-Public Use
  Company Number: JP-BOEHRINGER INGELHEIM PHARMACEUTICALS, INC.-2006-BP-00691NB

PATIENT
  Sex: Male
  Weight: 55 kg

DRUGS (1)
  1. MICARDIS [Suspect]
     Indication: ESSENTIAL HYPERTENSION
     Route: 048
     Dates: start: 20040317, end: 20040719

REACTIONS (3)
  - ANAEMIA [None]
  - HYPERURICAEMIA [None]
  - RENAL IMPAIRMENT [None]
